FAERS Safety Report 7520742-9 (Version None)
Quarter: 2011Q2

REPORT INFORMATION
  Report Type: 
  Country: None (occurrence: None)
  Receive Date: 20110603
  Receipt Date: 20100930
  Transmission Date: 20111010
  Serious: Yes (Death, Hospitalization)
  Sender: FDA-Public Use
  Company Number: JP-BAYER-200914397BYL

PATIENT
  Age: 76 Year
  Sex: Male
  Weight: 60.25 kg

DRUGS (1)
  1. NEXAVAR [Suspect]
     Indication: RENAL CELL CARCINOMA
     Dosage: AFTER BREAKFAST AND DINNER
     Route: 048
     Dates: start: 20081215, end: 20091002

REACTIONS (4)
  - CONVULSION [None]
  - LIPASE INCREASED [None]
  - HYPERTENSION [None]
  - RENAL CELL CARCINOMA [None]
